FAERS Safety Report 21407097 (Version 3)
Quarter: 2023Q2

REPORT INFORMATION
  Report Type: Report from Study
  Country: US (occurrence: US)
  Receive Date: 20221004
  Receipt Date: 20230417
  Transmission Date: 20230721
  Serious: No
  Sender: FDA-Public Use
  Company Number: US-ABBVIE-4135706

PATIENT
  Age: 53 Year
  Sex: Male

DRUGS (3)
  1. SKYRIZI [Suspect]
     Active Substance: RISANKIZUMAB-RZAA
     Indication: Psoriasis
     Dosage: WEEK 0?STOP DATE 2022?FORM STRENGTH: 150 MG
     Route: 058
     Dates: start: 202208
  2. SKYRIZI [Suspect]
     Active Substance: RISANKIZUMAB-RZAA
     Dosage: STOP DATE 2023?FORM STRENGTH: 150 MG
     Route: 058
     Dates: start: 202301
  3. SKYRIZI [Suspect]
     Active Substance: RISANKIZUMAB-RZAA
     Dosage: WEEK 4?FORM STRENGTH: 150 MG?SKYRIZI 150 MG/ML INJECT 1 SYRINGE SQ AT WEEK 0, WEEK 4, THEN EVERY ...
     Route: 058

REACTIONS (3)
  - Off label use [Unknown]
  - Psoriasis [Unknown]
  - Neuropathy peripheral [Unknown]

NARRATIVE: CASE EVENT DATE: 20220901
